FAERS Safety Report 7725857-8 (Version None)
Quarter: 2011Q3

REPORT INFORMATION
  Report Type: 
  Country: None (occurrence: None)
  Receive Date: 20110830
  Receipt Date: 20110815
  Transmission Date: 20111222
  Serious: Yes (Death)
  Sender: FDA-Public Use
  Company Number: JPI-P-012341

PATIENT
  Age: 41 Year
  Sex: Female

DRUGS (2)
  1. XYREM [Suspect]
     Indication: CATAPLEXY
     Dosage: 4.5 GM (2.25 GM, 2 IN 1 D), ORAL; (3.5 GM FIRST DOSE/3.75 GM SECOND DOSE) ORAL
     Route: 048
     Dates: start: 20100517
  2. XYREM [Suspect]
     Indication: CATAPLEXY
     Dosage: 4.5 GM (2.25 GM, 2 IN 1 D), ORAL; (3.5 GM FIRST DOSE/3.75 GM SECOND DOSE) ORAL
     Route: 048
     Dates: start: 20070126

REACTIONS (1)
  - SUDDEN DEATH [None]
